FAERS Safety Report 25622058 (Version 1)
Quarter: 2025Q3

REPORT INFORMATION
  Report Type: Spontaneous
  Country: US (occurrence: US)
  Receive Date: 20250730
  Receipt Date: 20250730
  Transmission Date: 20251021
  Serious: Yes (Other)
  Sender: MERZ
  Company Number: US-MERZ PHARMACEUTICALS LLC-ACO_178501_2025

PATIENT
  Age: 87 Year
  Sex: Male

DRUGS (2)
  1. INBRIJA [Suspect]
     Active Substance: LEVODOPA
     Indication: Product used for unknown indication
  2. INBRIJA [Suspect]
     Active Substance: LEVODOPA
     Dates: start: 20250723

REACTIONS (4)
  - Hip fracture [Unknown]
  - Parkinson^s disease [Unknown]
  - Memory impairment [Unknown]
  - Asthenia [Unknown]

NARRATIVE: CASE EVENT DATE: 20250127
